FAERS Safety Report 6308410-2 (Version None)
Quarter: 2009Q3

REPORT INFORMATION
  Report Type: 
  Country: None (occurrence: None)
  Receive Date: 20090810
  Receipt Date: 20090723
  Transmission Date: 20100115
  Serious: Yes (Other)
  Sender: FDA-Public Use
  Company Number: 200908001

PATIENT
  Age: 23 Year
  Sex: Male

DRUGS (1)
  1. TESTIM [Suspect]
     Dosage: TRANSDERMAL
     Route: 062

REACTIONS (1)
  - TUBULOINTERSTITIAL NEPHRITIS [None]
